FAERS Safety Report 16964841 (Version 1)
Quarter: 2019Q4

REPORT INFORMATION
  Report Type: Spontaneous
  Country: JP (occurrence: JP)
  Receive Date: 20191028
  Receipt Date: 20191028
  Transmission Date: 20200122
  Serious: Yes (Hospitalization, Other)
  Sender: FDA-Public Use
  Company Number: JP-AMGEN-JPNSP2019178504

PATIENT
  Age: 62 Year
  Sex: Female

DRUGS (3)
  1. RANMARK [Suspect]
     Active Substance: DENOSUMAB
     Indication: METASTASES TO BONE
     Dosage: UNK
     Route: 065
     Dates: start: 2016
  2. IBRANCE [Concomitant]
     Active Substance: PALBOCICLIB
     Dosage: UNK
     Route: 065
  3. FASLODEX [Concomitant]
     Active Substance: FULVESTRANT
     Indication: BREAST CANCER
     Dosage: UNK
     Route: 065
     Dates: start: 2016

REACTIONS (6)
  - Cerebral infarction [Unknown]
  - Stress cardiomyopathy [Unknown]
  - Adverse reaction [Unknown]
  - Malignant pleural effusion [Unknown]
  - Superior vena cava occlusion [Unknown]
  - Metastases to oesophagus [Unknown]

NARRATIVE: CASE EVENT DATE: 2017
